FAERS Safety Report 10872746 (Version 1)
Quarter: 2015Q1

REPORT INFORMATION
  Report Type: Spontaneous
  Country: US (occurrence: US)
  Receive Date: 20150227
  Receipt Date: 20150227
  Transmission Date: 20150721
  Serious: No
  Sender: FDA-Public Use
  Company Number: US-009507513-1502USA000120

PATIENT
  Age: 85 Year
  Sex: Male

DRUGS (1)
  1. ZEMURON [Suspect]
     Active Substance: ROCURONIUM BROMIDE
     Indication: ANAESTHESIA
     Dosage: 40 MG, UNK
     Route: 007

REACTIONS (3)
  - Drug effect prolonged [Unknown]
  - Drug effect delayed [Unknown]
  - Asthenia [Unknown]
